FAERS Safety Report 8346173-X (Version None)
Quarter: 2012Q2

REPORT INFORMATION
  Report Type: 
  Country: None (occurrence: None)
  Receive Date: 20120509
  Receipt Date: 20120425
  Transmission Date: 20120825
  Serious: Yes (Death, Hospitalization, Other)
  Sender: FDA-Public Use
  Company Number: US-MYLANLABS-2009AL000707

PATIENT
  Sex: Male
  Weight: 83.01 kg

DRUGS (60)
  1. PLAVIX [Concomitant]
  2. TAXOL [Concomitant]
  3. CARBOPLATIN [Concomitant]
  4. NEXIUM [Concomitant]
  5. ARAVA [Concomitant]
  6. METHOTREXATE [Concomitant]
  7. OXYGEN [Concomitant]
  8. POTASSIUM CHLORIDE [Concomitant]
  9. PROMETHAZINE [Concomitant]
  10. AVELOX [Concomitant]
  11. ASPIRIN [Concomitant]
  12. COUMADIN [Concomitant]
  13. NABUMETONE [Concomitant]
  14. JANTOVEN [Concomitant]
  15. NAPROXEN (ALEVE) [Concomitant]
  16. PNEUMOCOCCAL VACCINE [Concomitant]
  17. CARVEDILOL [Concomitant]
  18. GRIS-PEG [Concomitant]
  19. FOLBEE [Concomitant]
  20. HYDROCODONE BITARTRATE [Concomitant]
  21. LEFLUNOMIDE [Concomitant]
  22. DOCUSATE [Concomitant]
  23. WARFARIN SODIUM [Concomitant]
  24. LORATADINE [Concomitant]
  25. TRAMADOL HYDROCHLORIDE [Concomitant]
  26. DIGOXIN [Suspect]
     Indication: HEART RATE IRREGULAR
     Route: 048
     Dates: start: 20070325, end: 20080314
  27. WARFARIN SODIUM [Concomitant]
  28. AMIODARONE HCL [Concomitant]
  29. ANZEMET [Concomitant]
  30. ATIVAN [Concomitant]
  31. LOMOTIL [Concomitant]
  32. UNIPHYL [Concomitant]
  33. ALLEGRA-D 12 HOUR [Concomitant]
  34. COREG [Concomitant]
  35. DEXAMETHASONE [Concomitant]
  36. NITROGLYCERIN [Concomitant]
  37. PHENERGAN [Concomitant]
  38. TARCEVA [Concomitant]
  39. DOXYCYCLINE [Concomitant]
  40. RELAFEN [Concomitant]
  41. GUAIFENESIN [Concomitant]
  42. MEXILETINE HYDROCHLORIDE [Concomitant]
  43. POTASSIUM CHLORIDE [Concomitant]
  44. NITROGLYCERIN [Concomitant]
  45. LIPITOR [Concomitant]
  46. NITROSTAT [Concomitant]
  47. PANNAZ /01056401/ [Concomitant]
  48. CIPROFLOXACIN [Concomitant]
  49. FUROSEMIDE [Concomitant]
  50. LORAZEPAM [Concomitant]
  51. MELOXICAM [Concomitant]
  52. RANITIDINE [Concomitant]
  53. MOBIC [Concomitant]
  54. PREDNISONE TAB [Concomitant]
  55. GUAIFENEX /00048001/ [Concomitant]
  56. CEPHALEXIN [Concomitant]
  57. FOLIC ACID [Concomitant]
  58. ONDANSETRON [Concomitant]
  59. FLUCONAZOLE [Concomitant]
  60. ALBUTEROL [Concomitant]

REACTIONS (63)
  - ILL-DEFINED DISORDER [None]
  - DYSPNOEA [None]
  - ACUTE PULMONARY OEDEMA [None]
  - RHINORRHOEA [None]
  - TRANSIENT ISCHAEMIC ATTACK [None]
  - CEREBRAL ATROPHY [None]
  - CEREBROVASCULAR ACCIDENT [None]
  - IMPLANTABLE DEFIBRILLATOR INSERTION [None]
  - PARAESTHESIA [None]
  - DEATH [None]
  - EMOTIONAL DISTRESS [None]
  - HEMIPARESIS [None]
  - CORONARY ARTERY DISEASE [None]
  - RENAL FAILURE [None]
  - CHEST PAIN [None]
  - VENTRICULAR TACHYCARDIA [None]
  - CIRCULATORY COLLAPSE [None]
  - CORONARY ARTERIAL STENT INSERTION [None]
  - ECHOCARDIOGRAM ABNORMAL [None]
  - HEPATIC LESION [None]
  - VOMITING [None]
  - ECONOMIC PROBLEM [None]
  - CHRONIC OBSTRUCTIVE PULMONARY DISEASE [None]
  - NEOPLASM PROGRESSION [None]
  - SYNCOPE [None]
  - COMPUTERISED TOMOGRAM ABNORMAL [None]
  - CORONARY ANGIOPLASTY [None]
  - RADIOTHERAPY TO BRAIN [None]
  - HEADACHE [None]
  - HYPOXIA [None]
  - METASTASES TO CENTRAL NERVOUS SYSTEM [None]
  - NEUROPATHY PERIPHERAL [None]
  - RADIOTHERAPY [None]
  - JAUNDICE [None]
  - EMBOLIC STROKE [None]
  - MENTAL STATUS CHANGES [None]
  - INJURY [None]
  - PAIN [None]
  - LUNG ADENOCARCINOMA [None]
  - FLUID OVERLOAD [None]
  - ASTHENIA [None]
  - HYPERHIDROSIS [None]
  - CARDIAC FAILURE CONGESTIVE [None]
  - ARTERIOGRAM CORONARY ABNORMAL [None]
  - FATIGUE [None]
  - PALPITATIONS [None]
  - SUPRAVENTRICULAR EXTRASYSTOLES [None]
  - ACUTE MYOCARDIAL INFARCTION [None]
  - HEMIPLEGIA [None]
  - ALOPECIA [None]
  - CARDIOVERSION [None]
  - COUGH [None]
  - DYSARTHRIA [None]
  - PNEUMONIA [None]
  - TOXICITY TO VARIOUS AGENTS [None]
  - CHEMOTHERAPY [None]
  - NAUSEA [None]
  - ISCHAEMIC STROKE [None]
  - NON-SMALL CELL LUNG CANCER RECURRENT [None]
  - RECTAL HAEMORRHAGE [None]
  - ARTHRALGIA [None]
  - BREATH SOUNDS ABNORMAL [None]
  - LABORATORY TEST ABNORMAL [None]
